FAERS Safety Report 5542018-1 (Version None)
Quarter: 2007Q4

REPORT INFORMATION
  Report Type: 
  Country: None (occurrence: None)
  Receive Date: 20071210
  Receipt Date: 20071127
  Transmission Date: 20080405
  Serious: Yes (Hospitalization)
  Sender: FDA-Public Use
  Company Number: US-MERCK-0711USA05066

PATIENT
  Age: 70 Year
  Sex: Female
  Weight: 76 kg

DRUGS (10)
  1. DECADRON [Suspect]
     Indication: MULTIPLE MYELOMA
     Route: 048
     Dates: start: 20061029, end: 20061101
  2. THALOMID [Suspect]
     Indication: MULTIPLE MYELOMA
     Route: 048
     Dates: start: 20061029, end: 20061113
  3. ATIVAN [Concomitant]
     Indication: MULTIPLE MYELOMA
     Route: 065
     Dates: start: 20060919
  4. HYDRODIURIL [Concomitant]
     Route: 048
     Dates: start: 20060919
  5. PROTONIX [Concomitant]
     Route: 065
     Dates: start: 20061120
  6. TIMOPTIC [Concomitant]
     Indication: MULTIPLE MYELOMA
     Route: 065
     Dates: start: 20070205
  7. VITAMIN E [Concomitant]
     Route: 065
     Dates: start: 20070205
  8. CLARITIN [Concomitant]
     Route: 065
  9. TETRAHYDROZOLINE HYDROCHLORIDE [Concomitant]
     Indication: GLAUCOMA
     Route: 065
  10. NEXIUM [Concomitant]
     Route: 065

REACTIONS (17)
  - ABDOMINAL DISTENSION [None]
  - ANXIETY [None]
  - CHEST DISCOMFORT [None]
  - CONSTIPATION [None]
  - DENTAL CARIES [None]
  - DYSPNOEA [None]
  - FATIGUE [None]
  - FEELING JITTERY [None]
  - INTESTINAL OBSTRUCTION [None]
  - JOINT SWELLING [None]
  - LIVER FUNCTION TEST ABNORMAL [None]
  - LOSS OF CONSCIOUSNESS [None]
  - OEDEMA PERIPHERAL [None]
  - OTORRHOEA [None]
  - PAIN IN EXTREMITY [None]
  - PROTEIN TOTAL INCREASED [None]
  - SYNOVIAL CYST [None]
